FAERS Safety Report 20737204 (Version 1)
Quarter: 2022Q2

REPORT INFORMATION
  Report Type: Spontaneous
  Country: US (occurrence: US)
  Receive Date: 20220421
  Receipt Date: 20220421
  Transmission Date: 20220720
  Serious: No
  Sender: FDA-Public Use
  Company Number: US-PFIZER INC-202101065397

PATIENT
  Sex: Male

DRUGS (1)
  1. TRIFLURIDINE [Suspect]
     Active Substance: TRIFLURIDINE
     Dosage: UNK

REACTIONS (1)
  - Drug ineffective [Unknown]
